FAERS Safety Report 13687887 (Version 1)
Quarter: 2017Q2

REPORT INFORMATION
  Report Type: Report from Study
  Country: None (occurrence: BE)
  Receive Date: 20170626
  Receipt Date: 20170626
  Transmission Date: 20170830
  Serious: Yes (Death)
  Sender: FDA-Public Use
  Company Number: BE-ABBVIE-17K-013-2018216-00

PATIENT
  Age: 75 Year
  Sex: Male

DRUGS (3)
  1. DUODOPA [Suspect]
     Active Substance: CARBIDOPA\LEVODOPA
     Indication: PARKINSON^S DISEASE
     Dosage: MD= 0 ML; CD= 4.2 ML/H DURING 16 HRS; EDA= 4 ML
     Route: 050
     Dates: start: 20110405, end: 20110406
  2. DUODOPA [Suspect]
     Active Substance: CARBIDOPA\LEVODOPA
     Dosage: MD= 0 ML; CD= 3.5 ML/H DURING 16 HRS; ND= 2.0 ML/H DURING 8 HRS; EDA= 1.0 ML
     Route: 050
     Dates: start: 20160809
  3. DUODOPA [Suspect]
     Active Substance: CARBIDOPA\LEVODOPA
     Dosage: DOSES CONTINUOUSLY MONITORED AND ADAPTED
     Route: 050
     Dates: start: 20110406, end: 20160809

REACTIONS (2)
  - Dyspnoea [Fatal]
  - Asthenia [Fatal]

NARRATIVE: CASE EVENT DATE: 20170622
